FAERS Safety Report 4641773-2 (Version None)
Quarter: 2005Q2

REPORT INFORMATION
  Report Type: 
  Country: None (occurrence: None)
  Receive Date: 20050421
  Receipt Date: 20050419
  Transmission Date: 20051028
  Serious: Yes (Hospitalization)
  Sender: FDA-Public Use
  Company Number: IT-MERCK-0504ITA00021

PATIENT
  Age: 78 Year
  Sex: Female

DRUGS (7)
  1. NOROXIN [Suspect]
     Indication: PYREXIA
     Route: 048
     Dates: start: 20050226, end: 20050306
  2. INSULIN [Concomitant]
     Route: 065
  3. NITROGLYCERIN [Concomitant]
     Route: 061
  4. AMLODIPINE BESYLATE [Concomitant]
     Route: 048
  5. ALLOPURINOL [Concomitant]
     Route: 048
  6. PAROXETINE [Concomitant]
     Route: 065
  7. ASPIRIN [Concomitant]
     Route: 065

REACTIONS (1)
  - CLOSTRIDIUM COLITIS [None]
